FAERS Safety Report 8272943-2 (Version None)
Quarter: 2012Q2

REPORT INFORMATION
  Report Type: 
  Country: None (occurrence: None)
  Receive Date: 20120411
  Receipt Date: 20120330
  Transmission Date: 20120825
  Serious: Yes (Other)
  Sender: FDA-Public Use
  Company Number: US-ELI_LILLY_AND_COMPANY-US201204001322

PATIENT
  Sex: Male

DRUGS (2)
  1. CYMBALTA [Suspect]
     Dosage: 60 MG, UNKNOWN
  2. CYMBALTA [Suspect]
     Dosage: 30 MG, UNKNOWN

REACTIONS (4)
  - VIITH NERVE PARALYSIS [None]
  - PARAESTHESIA [None]
  - HEMIPARESIS [None]
  - HYPOAESTHESIA [None]
